FAERS Safety Report 24655846 (Version 3)
Quarter: 2024Q4

REPORT INFORMATION
  Report Type: Report from Study
  Country: US (occurrence: US)
  Receive Date: 20241124
  Receipt Date: 20241222
  Transmission Date: 20250115
  Serious: Yes (Hospitalization, Other)
  Sender: CSL BEHRING
  Company Number: US-BEH-2024179143

PATIENT
  Age: 69 Year
  Sex: Female
  Weight: 155 kg

DRUGS (2)
  1. HIZENTRA [Suspect]
     Active Substance: HUMAN IMMUNOGLOBULIN G
     Dosage: 20 G
     Route: 065
  2. HIZENTRA [Suspect]
     Active Substance: HUMAN IMMUNOGLOBULIN G
     Dosage: 10 G, BIW
     Route: 065

REACTIONS (18)
  - Urosepsis [Unknown]
  - Kidney infection [Unknown]
  - Abdominal infection [Unknown]
  - Cystitis [Unknown]
  - Abdominal infection [Unknown]
  - Abdominal operation [Unknown]
  - Post procedural infection [Unknown]
  - Protein S deficiency [Unknown]
  - Chronic inflammatory demyelinating polyradiculoneuropathy [Unknown]
  - Ascites [Unknown]
  - Injection site pain [Unknown]
  - Hypertension [Unknown]
  - Therapy change [Unknown]
  - Renal pain [Unknown]
  - Cystitis [Unknown]
  - Urinary tract infection [Unknown]
  - Myalgia [Unknown]
  - Illness [Unknown]

NARRATIVE: CASE EVENT DATE: 20240905
